FAERS Safety Report 4317040-3 (Version None)
Quarter: 2004Q1

REPORT INFORMATION
  Report Type: 
  Country: None (occurrence: None)
  Receive Date: 20040312
  Receipt Date: 20040305
  Transmission Date: 20041129
  Serious: Yes (Hospitalization)
  Sender: FDA-Public Use
  Company Number: 2004198047US

PATIENT
  Age: 70 Year
  Sex: Female
  Weight: 53.5 kg

DRUGS (12)
  1. CELECOXIB VS PLACEBO (CODE NOT BROKEN) (CELECOXIB VS PLACEBO) CAPSULE [Suspect]
  2. FLUOROURACIL [Suspect]
     Indication: COLON CANCER
     Dosage: SEE IMAGE
     Route: 042
     Dates: start: 20031110
  3. FLUOROURACIL [Suspect]
     Indication: COLON CANCER
     Dosage: SEE IMAGE
     Route: 042
     Dates: start: 20031110
  4. CAMPTOSAR [Suspect]
     Indication: COLON CANCER
     Dosage: 288 MG, EVERY 2 WEEKS, IV
     Route: 042
     Dates: start: 20031110
  5. LEUCOVORIN CALCIUM [Suspect]
     Indication: COLON CANCER
     Dosage: 640 MG, EVERY 2 WEEKS, IV
     Route: 042
     Dates: start: 20031110
  6. TORECAN [Concomitant]
  7. PROMETHAZINE HCL [Concomitant]
  8. LIPITITOR (ATORVASTATIN) [Concomitant]
  9. LIBRAX (CLIDINIUM BROMIDE, CHLORDIAZEPOXIDE HYDROCHLORIDE) [Concomitant]
  10. TENORMIN [Concomitant]
  11. COUMADIN [Concomitant]
  12. CARAFATE [Concomitant]

REACTIONS (17)
  - DEHYDRATION [None]
  - DIARRHOEA [None]
  - DYSPEPSIA [None]
  - EPISTAXIS [None]
  - FLUID INTAKE REDUCED [None]
  - GRANULOCYTE COUNT DECREASED [None]
  - HAEMATOCHEZIA [None]
  - HAEMOGLOBIN DECREASED [None]
  - INTERNATIONAL NORMALISED RATIO INCREASED [None]
  - LEUKOPENIA [None]
  - MARKEDLY REDUCED DIETARY INTAKE [None]
  - MOUTH HAEMORRHAGE [None]
  - MOUTH ULCERATION [None]
  - MUCOSAL INFLAMMATION [None]
  - NAUSEA [None]
  - PLATELET COUNT INCREASED [None]
  - WHITE BLOOD CELL COUNT INCREASED [None]
